FAERS Safety Report 7816401-5 (Version None)
Quarter: 2011Q4

REPORT INFORMATION
  Report Type: 
  Country: None (occurrence: None)
  Receive Date: 20111017
  Receipt Date: 20111014
  Transmission Date: 20120403
  Serious: Yes (Death, Hospitalization)
  Sender: FDA-Public Use
  Company Number: CA-BRISTOL-MYERS SQUIBB COMPANY-15829807

PATIENT
  Age: 54 Year
  Sex: Female

DRUGS (5)
  1. FUROSEMIDE [Concomitant]
     Dates: start: 20110609, end: 20110701
  2. DEXAMETHASONE [Concomitant]
     Dates: start: 20110609
  3. APO-SALVENT [Concomitant]
     Dates: start: 20110527, end: 20110701
  4. IPILIMUMAB [Suspect]
     Indication: MALIGNANT MELANOMA
     Dosage: DRUG INTERRUPTED ON 02JUN2011.NO OF COURSES:2
     Route: 042
     Dates: start: 20110513
  5. VENTOLIN [Concomitant]
     Dates: start: 20110527, end: 20110701

REACTIONS (4)
  - PAIN [None]
  - HYPERCALCAEMIA [None]
  - NEOPLASM MALIGNANT [None]
  - BONE LESION [None]
